FAERS Safety Report 14942538 (Version 2)
Quarter: 2018Q4

REPORT INFORMATION
  Report Type: Report from Study
  Country: None (occurrence: US)
  Receive Date: 20180528
  Receipt Date: 20181017
  Transmission Date: 20190204
  Serious: Yes (Hospitalization, Other)
  Sender: FDA-Public Use
  Company Number: US-ABBVIE-18K-163-2366189-00

PATIENT
  Sex: Female

DRUGS (2)
  1. HUMIRA [Suspect]
     Active Substance: ADALIMUMAB
     Indication: CROHN^S DISEASE
     Route: 058
  2. HUMIRA [Suspect]
     Active Substance: ADALIMUMAB
     Indication: COLITIS ULCERATIVE
     Route: 058

REACTIONS (12)
  - Cataract [Recovered/Resolved]
  - Vomiting [Recovered/Resolved]
  - Uterine enlargement [Recovering/Resolving]
  - Abdominal operation [Recovered/Resolved]
  - Fatigue [Not Recovered/Not Resolved]
  - Swelling [Recovered/Resolved]
  - Influenza [Recovered/Resolved]
  - Uterine haemorrhage [Recovering/Resolving]
  - Infection [Unknown]
  - Asthenia [Recovering/Resolving]
  - Urinary tract infection [Recovered/Resolved]
  - Dehydration [Recovered/Resolved]
